FAERS Safety Report 4550016-X (Version None)
Quarter: 2005Q1

REPORT INFORMATION
  Report Type: 
  Country: None (occurrence: None)
  Receive Date: 20050110
  Receipt Date: 20041227
  Transmission Date: 20050727
  Serious: Yes (Life-Threatening)
  Sender: FDA-Public Use
  Company Number: 211356

PATIENT
  Age: 45 Year
  Sex: Female
  Weight: 71.2 kg

DRUGS (7)
  1. AVASTIN [Suspect]
     Indication: COLON CANCER
     Dosage: 330 MG, Q2W, INTRAVENOUS
     Route: 042
     Dates: start: 20040625
  2. FLUOROURACIL [Suspect]
     Indication: COLON CANCER
     Dosage: 400 MG MG,Q2W,INTRAVENOUS
     Route: 042
     Dates: start: 20020601, end: 20040601
  3. IBUPROFEN [Suspect]
     Indication: DRUG USE FOR UNKNOWN INDICATION
     Dosage: ORAL
  4. OXALIPLATIN [Concomitant]
  5. CENESTIN (ESTROGENS, CONJUGATED) [Concomitant]
  6. LEUCOVORIN CALCIUM [Concomitant]
  7. FLUOROURACIL [Suspect]
     Dosage: 400 MG, Q2W, INTRAVENOUS
     Route: 042
     Dates: start: 20040625

REACTIONS (8)
  - ANAPHYLACTIC REACTION [None]
  - ANGIONEUROTIC OEDEMA [None]
  - COMA [None]
  - CONVULSION [None]
  - DRUG INEFFECTIVE [None]
  - DYSPHONIA [None]
  - PRURITUS [None]
  - URTICARIA [None]
